FAERS Safety Report 6155410-1 (Version None)
Quarter: 2009Q2

REPORT INFORMATION
  Report Type: 
  Country: None (occurrence: None)
  Receive Date: 20090415
  Receipt Date: 20090413
  Transmission Date: 20091009
  Serious: Yes (Hospitalization)
  Sender: FDA-Public Use
  Company Number: JP-EISAI MEDIAL RESEARCH-E3810-02607-SPO-JP

PATIENT
  Age: 75 Year
  Sex: Male

DRUGS (14)
  1. PARIET (RABEPRAZOLE) [Suspect]
     Indication: GASTRIC ULCER HAEMORRHAGE
     Route: 048
     Dates: start: 20070523, end: 20090119
  2. PARIET (RABEPRAZOLE) [Suspect]
     Route: 048
     Dates: start: 20070408, end: 20070522
  3. ARTIST [Concomitant]
     Indication: HYPERTENSION
     Route: 048
     Dates: start: 20080212
  4. ARTIST [Concomitant]
     Route: 048
     Dates: start: 20070916, end: 20080206
  5. ADALAT CC [Concomitant]
     Indication: HYPERTENSION
     Route: 048
     Dates: start: 20080311
  6. ADALAT CC [Concomitant]
     Route: 048
     Dates: start: 20070411, end: 20080310
  7. NAFTOPIDIL [Concomitant]
     Indication: DYSURIA
     Route: 048
     Dates: start: 20070927
  8. AMOBAN [Concomitant]
     Indication: INSOMNIA
     Route: 048
     Dates: start: 20080603
  9. OLMESARTAN [Concomitant]
     Indication: HYPERTENSION
     Route: 048
     Dates: start: 20070926
  10. CONIEL [Concomitant]
     Indication: HYPERTENSION
     Route: 048
     Dates: start: 20070425
  11. ALLOPURINOL [Concomitant]
     Indication: HYPERURICAEMIA
     Route: 048
     Dates: start: 20070424
  12. SIGMART [Concomitant]
     Indication: ANGINA PECTORIS
     Route: 048
     Dates: start: 20070416
  13. PANALDINE [Concomitant]
     Indication: ANGINA PECTORIS
     Route: 048
     Dates: start: 20070410
  14. ASPIRIN [Concomitant]
     Indication: ANGINA PECTORIS
     Route: 048
     Dates: start: 20070410

REACTIONS (2)
  - COLITIS COLLAGENOUS [None]
  - DIARRHOEA [None]
